FAERS Safety Report 9886829 (Version 1)
Quarter: 2014Q1

REPORT INFORMATION
  Report Type: Report from Study
  Country: DE (occurrence: DE)
  Receive Date: 20140210
  Receipt Date: 20140210
  Transmission Date: 20141002
  Serious: Yes (Other)
  Sender: FDA-Public Use
  Company Number: DE-RB-063506-14

PATIENT
  Age: 33 Year
  Sex: Male

DRUGS (3)
  1. SUBUTEX UNSPECIFIED [Suspect]
     Indication: DRUG DEPENDENCE
     Dosage: DOSING DETAILS UNKNOWN. USED SUBUTEX PRIOR TO BEING  PRESCRIBED.
     Route: 065
  2. SUBUTEX UNSPECIFIED [Suspect]
     Dosage: DOSING DETAILS UNKNOWN. INJECTED/SNORTED
  3. MARIJUANA [Suspect]
     Indication: STRESS
     Route: 055

REACTIONS (6)
  - Self-injurious ideation [Unknown]
  - Drug abuse [Unknown]
  - Intentional drug misuse [Unknown]
  - Drug dependence [Unknown]
  - Stress [Unknown]
  - Substance abuse [Recovered/Resolved]
